FAERS Safety Report 21656908 (Version 1)
Quarter: 2022Q4

REPORT INFORMATION
  Report Type: Spontaneous
  Country: US (occurrence: None)
  Receive Date: 20221129
  Receipt Date: 20221129
  Transmission Date: 20230113
  Serious: Yes (Other)
  Sender: FDA-Public Use
  Company Number: 2022A385415

PATIENT
  Sex: Male

DRUGS (1)
  1. FARXIGA [Suspect]
     Active Substance: DAPAGLIFLOZIN PROPANEDIOL
     Indication: Overweight
     Route: 048
     Dates: start: 202107

REACTIONS (4)
  - Lower limb fracture [Unknown]
  - Nasopharyngitis [Unknown]
  - Weight decreased [Unknown]
  - Product use issue [Unknown]
